FAERS Safety Report 8618638 (Version 2)
Quarter: 2013Q1

REPORT INFORMATION
  Report Type: Spontaneous
  Country: JP (occurrence: JP)
  Receive Date: 20120618
  Receipt Date: 20130102
  Transmission Date: 20140127
  Serious: Yes (Death, Hospitalization)
  Sender: FDA-Public Use
  Company Number: JP-JNJFOC-20120210798

PATIENT
  Age: 58 Year
  Sex: Female
  Weight: 29 kg

DRUGS (6)
  1. REMICADE [Suspect]
     Indication: COLITIS ULCERATIVE
     Dosage: FIRST DOSE
     Route: 042
     Dates: start: 20111004
  2. REMICADE [Suspect]
     Indication: COLITIS ULCERATIVE
     Dosage: FOURTH DOSE
     Route: 042
     Dates: start: 20120130
  3. ASACOL [Concomitant]
     Indication: COLITIS ULCERATIVE
     Route: 048
  4. THEOLONG [Concomitant]
     Indication: SUPPORTIVE CARE
     Dosage: 2 TAB AND 1 TAB, ONCE A DAY
     Route: 048
  5. PARIET [Concomitant]
     Indication: GASTROOESOPHAGEAL REFLUX DISEASE
     Route: 048
  6. MUCODYNE [Concomitant]
     Indication: SUPPORTIVE CARE
     Dosage: 1500 MG AND 500 MG ONCE A DAY
     Route: 048

REACTIONS (4)
  - Pneumonia bacterial [Fatal]
  - Lung disorder [Not Recovered/Not Resolved]
  - Interstitial lung disease [Not Recovered/Not Resolved]
  - Altered state of consciousness [Unknown]
